FAERS Safety Report 5635418-2 (Version None)
Quarter: 2008Q1

REPORT INFORMATION
  Report Type: 
  Country: None (occurrence: None)
  Receive Date: 20080222
  Receipt Date: 20080213
  Transmission Date: 20080703
  Serious: Yes (Life-Threatening, Hospitalization, Other)
  Sender: FDA-Public Use
  Company Number: US-GENENTECH-255413

PATIENT
  Sex: Female
  Weight: 48.3 kg

DRUGS (4)
  1. NUTROPIN [Suspect]
     Indication: GROWTH HORMONE DEFICIENCY
     Dosage: 1.1 MG, QD
     Route: 058
     Dates: start: 20020701
  2. SERTRALINE [Concomitant]
     Indication: DRUG USE FOR UNKNOWN INDICATION
     Dosage: 50 MG, QD
     Route: 048
  3. ALENE [Concomitant]
     Indication: DRUG USE FOR UNKNOWN INDICATION
     Dosage: UNK, PRN
     Route: 048
  4. ZANTAC 150 [Concomitant]
     Indication: DRUG USE FOR UNKNOWN INDICATION
     Dosage: 75 MG/K/H, BID
     Route: 048

REACTIONS (1)
  - MEDULLOBLASTOMA RECURRENT [None]
